FAERS Safety Report 24936746 (Version 3)
Quarter: 2025Q1

REPORT INFORMATION
  Report Type: Spontaneous
  Country: FR (occurrence: FR)
  Receive Date: 20250206
  Receipt Date: 20250317
  Transmission Date: 20250408
  Serious: Yes (Congenital Anomaly, Other)
  Sender: UCB
  Company Number: FR-UCBSA-2025006640

PATIENT
  Age: 14 Year
  Sex: Female
  Weight: 44 kg

DRUGS (8)
  1. FINTEPLA [Suspect]
     Active Substance: FENFLURAMINE
     Indication: Product used for unknown indication
  2. FINTEPLA [Suspect]
     Active Substance: FENFLURAMINE
     Indication: Lennox-Gastaut syndrome
     Dates: start: 20230921
  3. FINTEPLA [Suspect]
     Active Substance: FENFLURAMINE
     Dates: start: 20231010
  4. FINTEPLA [Suspect]
     Active Substance: FENFLURAMINE
     Dates: start: 20240410
  5. FINTEPLA [Suspect]
     Active Substance: FENFLURAMINE
     Dates: start: 20240627, end: 20241220
  6. VALPROATE [Concomitant]
     Active Substance: VALPROIC ACID
     Indication: Product used for unknown indication
     Dosage: 500 MILLIGRAM, 2X/DAY (BID)
     Dates: start: 201810
  7. CANNABIDIOL [Concomitant]
     Active Substance: CANNABIDIOL
     Indication: Product used for unknown indication
     Dates: end: 20241101
  8. LAMOTRIGINE [Concomitant]
     Active Substance: LAMOTRIGINE
     Indication: Product used for unknown indication
     Dosage: 100 MILLIGRAM, 2X/DAY (BID)

REACTIONS (4)
  - Mitral valve dysplasia [Unknown]
  - Cardiac valve disease [Unknown]
  - Mitral valve incompetence [Unknown]
  - Drug ineffective [Unknown]

NARRATIVE: CASE EVENT DATE: 20241101
